FAERS Safety Report 8891525 (Version 1)
Quarter: 2012Q4

REPORT INFORMATION
  Report Type: 
  Country: US (occurrence: US)
  Receive Date: 20121107
  Receipt Date: 20121107
  Transmission Date: 20130627
  Serious: No
  Sender: FDA-Public Use
  Company Number: US-AMGEN-USASP2011058499

PATIENT
  Age: 57 Year
  Sex: Female
  Weight: 190 kg

DRUGS (9)
  1. ENBREL [Suspect]
     Indication: PRODUCT USED FOR UNKNOWN INDICATION
     Dosage: 50 mg, qwk
  2. METHOTREXATE [Concomitant]
     Dosage: 2.5 mg, UNK
  3. NAPROXEN [Concomitant]
     Dosage: 500 mg, UNK
  4. OMEPRAZOLE [Concomitant]
     Dosage: 20 mg, UNK
  5. ACTONEL [Concomitant]
     Dosage: 75 mg, UNK
  6. BIOTIN [Concomitant]
     Dosage: 1000 UNK, UNK
  7. TYLENOL /00020001/ [Concomitant]
     Dosage: 325 mg, UNK
  8. FOLIC ACID [Concomitant]
     Dosage: 1000 UNK, UNK
  9. VITAMIN D /00107901/ [Concomitant]
     Dosage: UNK

REACTIONS (1)
  - Headache [Unknown]
